FAERS Safety Report 23122545 (Version 1)
Quarter: 2023Q4

REPORT INFORMATION
  Report Type: Spontaneous
  Country: US (occurrence: US)
  Receive Date: 20231030
  Receipt Date: 20231030
  Transmission Date: 20240109
  Serious: Yes (Other)
  Sender: FDA-Public Use
  Company Number: US-AMGEN-USASP2023189710

PATIENT
  Sex: Female

DRUGS (1)
  1. PROLIA [Suspect]
     Active Substance: DENOSUMAB
     Indication: Product used for unknown indication
     Dosage: UNK, Q6MO
     Route: 065

REACTIONS (8)
  - Parathyroid tumour [Unknown]
  - Rash erythematous [Recovered/Resolved]
  - Exfoliative rash [Recovered/Resolved]
  - Rash pruritic [Recovered/Resolved]
  - Alopecia [Recovered/Resolved]
  - Vein disorder [Unknown]
  - Malaise [Unknown]
  - Fatigue [Unknown]
